FAERS Safety Report 4953599-0 (Version None)
Quarter: 2006Q1

REPORT INFORMATION
  Report Type: 
  Country: None (occurrence: None)
  Receive Date: 20060324
  Receipt Date: 20060322
  Transmission Date: 20060701
  Serious: Yes (Disabling)
  Sender: FDA-Public Use
  Company Number: US-MERCK-0603USA03510

PATIENT
  Age: 65 Year
  Sex: Female

DRUGS (2)
  1. HYZAAR [Suspect]
     Indication: HYPERTENSION
     Route: 048
     Dates: start: 20030101
  2. ASPIRIN [Concomitant]
     Route: 065

REACTIONS (3)
  - JOINT SWELLING [None]
  - PAIN IN EXTREMITY [None]
  - POLYURIA [None]
